FAERS Safety Report 8834065 (Version 1)
Quarter: 2012Q4

REPORT INFORMATION
  Report Type: 
  Country: US (occurrence: US)
  Receive Date: 20121010
  Receipt Date: 20121010
  Transmission Date: 20130627
  Serious: No
  Sender: FDA-Public Use
  Company Number: US-009507513-1210USA004006

PATIENT
  Age: 25 Year
  Sex: Female
  Weight: 104.31 kg

DRUGS (1)
  1. NUVARING [Suspect]
     Indication: CONTRACEPTION
     Dosage: 3 weeks
     Route: 067
     Dates: start: 20120927, end: 20121004

REACTIONS (3)
  - Nausea [Unknown]
  - Dizziness [Unknown]
  - Menorrhagia [Unknown]
